FAERS Safety Report 4497999-4 (Version None)
Quarter: 2004Q4

REPORT INFORMATION
  Report Type: 
  Country: None (occurrence: None)
  Receive Date: 20041109
  Receipt Date: 20041109
  Transmission Date: 20050328
  Serious: Yes (Hospitalization)
  Sender: FDA-Public Use
  Company Number: None

PATIENT
  Age: 74 Year
  Sex: Male
  Weight: 57.6068 kg

DRUGS (16)
  1. LISINOPRIL [Suspect]
     Indication: HYPERTENSION
     Dosage: 2.5 MG DAILY ORAL
     Route: 048
  2. ALBUTEROL MDI INHALANT [Concomitant]
  3. ALUMINUM HYDROXIDE SUSP [Concomitant]
  4. ASPIRIN TAB, EC [Concomitant]
  5. BISACODYL SUPP [Concomitant]
  6. DEXTROSE 50% INJ, SOLN [Concomitant]
  7. DOCUSATE SODIUM CAP [Concomitant]
  8. HEPARIN SODIUM (PORK) INJ, SOLN [Concomitant]
  9. INSULIN HUMAN NPH U-100 INJ [Concomitant]
  10. INSULIN HUMAN NPH U-100 INJ [Concomitant]
  11. METOPROLOL TAB [Concomitant]
  12. MULTIVITAMIN WITH MINERALS TAB [Concomitant]
  13. OMEPRAZOLE CAP, SA [Concomitant]
  14. PAPAIN/UREA OINT, TOP [Concomitant]
  15. SIMVASTATIN TAB [Concomitant]
  16. LISINOPRIL [Concomitant]

REACTIONS (6)
  - HAEMODIALYSIS [None]
  - HYPERKALAEMIA [None]
  - HYPERTENSION [None]
  - NAUSEA [None]
  - RENAL FAILURE ACUTE [None]
  - WOUND INFECTION STAPHYLOCOCCAL [None]
